FAERS Safety Report 23479838 (Version 2)
Quarter: 2025Q1

REPORT INFORMATION
  Report Type: Spontaneous
  Country: US (occurrence: US)
  Receive Date: 20240205
  Receipt Date: 20250227
  Transmission Date: 20250409
  Serious: No
  Sender: UCB
  Company Number: US-UCBSA-2023036340

PATIENT
  Sex: Female

DRUGS (9)
  1. LEVETIRACETAM [Suspect]
     Active Substance: LEVETIRACETAM
     Indication: Seizure
  2. TOPIRAMATE [Suspect]
     Active Substance: TOPIRAMATE
     Indication: Seizure
  3. CLOBAZAM [Suspect]
     Active Substance: CLOBAZAM
     Indication: Seizure
  4. CLONIDINE [Suspect]
     Active Substance: CLONIDINE
     Indication: Seizure
  5. OXCARBAZEPINE [Suspect]
     Active Substance: OXCARBAZEPINE
     Indication: Seizure
  6. VALPROIC ACID [Suspect]
     Active Substance: VALPROIC ACID
     Indication: Seizure
  7. ZONISAMIDE [Suspect]
     Active Substance: ZONISAMIDE
     Indication: Seizure
  8. DIVALPROEX SODIUM [Suspect]
     Active Substance: DIVALPROEX SODIUM
     Indication: Seizure
  9. ASFOTASE ALFA [Concomitant]
     Active Substance: ASFOTASE ALFA
     Indication: Multiple congenital abnormalities

REACTIONS (1)
  - Multiple-drug resistance [Unknown]
